FAERS Safety Report 9142484 (Version 3)
Quarter: 2013Q2

REPORT INFORMATION
  Report Type: Spontaneous
  Country: US (occurrence: US)
  Receive Date: 20130306
  Receipt Date: 20130626
  Transmission Date: 20140414
  Serious: No
  Sender: FDA-Public Use
  Company Number: US-BIOGENIDEC-2013BI019463

PATIENT
  Age: 33 Year
  Sex: Female

DRUGS (1)
  1. TYSABRI [Suspect]
     Indication: MULTIPLE SCLEROSIS
     Route: 042
     Dates: start: 20120829

REACTIONS (5)
  - Somnolence [Recovered/Resolved with Sequelae]
  - Panic attack [Recovered/Resolved]
  - Infusion site extravasation [Recovered/Resolved]
  - Infusion site bruising [Recovered/Resolved]
  - Fatigue [Recovered/Resolved with Sequelae]
